FAERS Safety Report 4561231-3 (Version None)
Quarter: 2005Q1

REPORT INFORMATION
  Report Type: 
  Country: None (occurrence: None)
  Receive Date: 20050121
  Receipt Date: 20050114
  Transmission Date: 20050727
  Serious: Yes (Other)
  Sender: FDA-Public Use
  Company Number: S05-USA-00227-01

PATIENT

DRUGS (2)
  1. NAMENDA [Suspect]
  2. REMINYL [Suspect]

REACTIONS (1)
  - HEPATIC FAILURE [None]
